FAERS Safety Report 18164312 (Version 2)
Quarter: 2021Q1

REPORT INFORMATION
  Report Type: Report from Study
  Country: GR (occurrence: GR)
  Receive Date: 20200818
  Receipt Date: 20210106
  Transmission Date: 20210419
  Serious: Yes (Other)
  Sender: FDA-Public Use
  Company Number: GR-ELI_LILLY_AND_COMPANY-GR202007004862

PATIENT
  Age: 63 Year
  Sex: Female

DRUGS (8)
  1. FORSTEO [Suspect]
     Active Substance: TERIPARATIDE
     Indication: OSTEOPOROSIS
     Dosage: 20 UG, DAILY
     Route: 058
     Dates: start: 20200123
  2. MIRAPEXIN [Concomitant]
     Active Substance: PRAMIPEXOLE
     Dosage: 0.5 DOSAGE FORM, DAILY
  3. FORSTEO [Suspect]
     Active Substance: TERIPARATIDE
     Dosage: 20 UG, DAILY
     Route: 058
  4. LYRICA [Concomitant]
     Active Substance: PREGABALIN
     Indication: PAIN IN EXTREMITY
     Dosage: UNK UNK, UNKNOWN
  5. LYRICA [Concomitant]
     Active Substance: PREGABALIN
     Dosage: 25 MG, UNKNOWN
  6. FORSTEO [Suspect]
     Active Substance: TERIPARATIDE
     Dosage: 20 UG, DAILY
     Route: 058
     Dates: end: 20201002
  7. LIPITOR [Suspect]
     Active Substance: ATORVASTATIN CALCIUM
     Indication: PRODUCT USED FOR UNKNOWN INDICATION
     Dosage: UNK UNK, UNKNOWN
     Route: 065
  8. MIRAPEXIN [Concomitant]
     Active Substance: PRAMIPEXOLE
     Indication: PRODUCT USED FOR UNKNOWN INDICATION
     Dosage: UNK UNK, UNKNOWN

REACTIONS (11)
  - Peripheral swelling [Not Recovered/Not Resolved]
  - Laziness [Not Recovered/Not Resolved]
  - Episcleritis [Recovering/Resolving]
  - Renal impairment [Unknown]
  - Electrocardiogram QRS complex prolonged [Recovering/Resolving]
  - Rheumatoid arthritis [Recovering/Resolving]
  - Memory impairment [Unknown]
  - Sciatica [Not Recovered/Not Resolved]
  - Somnolence [Not Recovered/Not Resolved]
  - C-reactive protein increased [Unknown]
  - Fatigue [Not Recovered/Not Resolved]

NARRATIVE: CASE EVENT DATE: 202007
